FAERS Safety Report 6184885-7 (Version None)
Quarter: 2009Q2

REPORT INFORMATION
  Report Type: 
  Country: None (occurrence: None)
  Receive Date: 20090508
  Receipt Date: 20090423
  Transmission Date: 20091009
  Serious: Yes (Life-Threatening, Hospitalization)
  Sender: FDA-Public Use
  Company Number: MX-AMGEN-UK341983

PATIENT
  Sex: Female
  Weight: 94.5 kg

DRUGS (6)
  1. NEULASTIM [Suspect]
     Indication: CHEMOTHERAPY
     Route: 058
     Dates: start: 20060920, end: 20061122
  2. CYCLOPHOSPHAMIDE [Concomitant]
     Dates: start: 20060919, end: 20060919
  3. DOXORUBICIN HYDROCHLORIDE [Concomitant]
     Dates: start: 20060919, end: 20060919
  4. VINCRISTINE [Concomitant]
     Dates: start: 20060919, end: 20060919
  5. PREDNISOLONE [Concomitant]
     Dates: start: 20060919, end: 20060923
  6. OMEPRAZOLE [Concomitant]
     Dates: start: 20060919

REACTIONS (2)
  - PERICARDIAL EFFUSION [None]
  - PLEURAL EFFUSION [None]
